FAERS Safety Report 19909726 (Version 1)
Quarter: 2021Q4

REPORT INFORMATION
  Report Type: Spontaneous
  Country: US (occurrence: US)
  Receive Date: 20211002
  Receipt Date: 20211002
  Transmission Date: 20220303
  Serious: No
  Sender: FDA-Public Use
  Company Number: US-SA-SAC20210928000285

PATIENT
  Age: 61 Year
  Sex: Female

DRUGS (13)
  1. DUPIXENT [Suspect]
     Active Substance: DUPILUMAB
     Indication: Dermatitis atopic
     Dosage: 300 MG, QOW
     Route: 058
  2. SYNTHROID [Concomitant]
     Active Substance: LEVOTHYROXINE SODIUM
     Dosage: UNK
  3. EYLEA [Concomitant]
     Active Substance: AFLIBERCEPT
     Dosage: UNK
  4. ROSUVASTATIN CALCIUM [Concomitant]
     Active Substance: ROSUVASTATIN CALCIUM
     Dosage: UNK
  5. LISINOPRIL [Concomitant]
     Active Substance: LISINOPRIL
     Dosage: UNK
  6. SINGULAIR [Concomitant]
     Active Substance: MONTELUKAST SODIUM
     Dosage: UNK
  7. INCRUSE ELLIPTA [Concomitant]
     Active Substance: UMECLIDINIUM BROMIDE
     Dosage: UNK
  8. SYMBICORT [Concomitant]
     Active Substance: BUDESONIDE\FORMOTEROL FUMARATE DIHYDRATE
     Dosage: UNK
  9. ALBUTEROL SULFATE [Concomitant]
     Active Substance: ALBUTEROL SULFATE
     Dosage: UNK
  10. .ALPHA.-TOCOPHEROL [Concomitant]
     Active Substance: .ALPHA.-TOCOPHEROL
     Dosage: UNK
  11. ASCORBIC ACID\BIOFLAVONOIDS [Concomitant]
     Active Substance: ASCORBIC ACID\BIOFLAVONOIDS
     Dosage: UNK
  12. PROBIOTIC ACIDOPHILUS [CALCIUM PHOSPHATE DIBASIC;LACTOBACILLUS ACIDOPH [Concomitant]
     Dosage: UNK
  13. GLUCOSAMINE 1500 [Concomitant]
     Dosage: UNK

REACTIONS (2)
  - Injection site erythema [Recovered/Resolved]
  - Injection site rash [Recovered/Resolved]
